FAERS Safety Report 23421460 (Version 1)
Quarter: 2024Q1

REPORT INFORMATION
  Report Type: Spontaneous
  Country: US (occurrence: US)
  Receive Date: 20240119
  Receipt Date: 20240119
  Transmission Date: 20240409
  Serious: Yes (Hospitalization)
  Sender: FDA-Public Use
  Company Number: US-BAYER-2024A009834

PATIENT
  Age: 63 Year
  Sex: Male

DRUGS (3)
  1. ADEMPAS [Suspect]
     Active Substance: RIOCIGUAT
     Indication: Pulmonary hypertension
     Dosage: UNK
  2. ADEMPAS [Suspect]
     Active Substance: RIOCIGUAT
     Indication: Pulmonary hypertension
     Dosage: 2.5 MG, TID
     Dates: start: 20230106
  3. WARFARIN [Concomitant]
     Active Substance: WARFARIN

REACTIONS (6)
  - Hypervolaemia [None]
  - Asthenia [None]
  - Fatigue [None]
  - Dyspnoea [None]
  - Dizziness [None]
  - Peripheral swelling [None]
